FAERS Safety Report 18112105 (Version 4)
Quarter: 2024Q4

REPORT INFORMATION
  Report Type: Spontaneous
  Country: US (occurrence: US)
  Receive Date: 20200805
  Receipt Date: 20241217
  Transmission Date: 20250114
  Serious: No
  Sender: BIOGEN
  Company Number: US-BIOGEN-2020BI00905978

PATIENT
  Sex: Female

DRUGS (1)
  1. TECFIDERA [Suspect]
     Active Substance: DIMETHYL FUMARATE
     Indication: Multiple sclerosis
     Route: 050
     Dates: start: 20140422, end: 20201020

REACTIONS (5)
  - Liver function test decreased [Unknown]
  - Weight decreased [Unknown]
  - Gastrointestinal disorder [Recovered/Resolved]
  - Diarrhoea [Unknown]
  - Flushing [Unknown]
